FAERS Safety Report 6108690-2 (Version None)
Quarter: 2009Q1

REPORT INFORMATION
  Report Type: 
  Country: None (occurrence: None)
  Receive Date: 20090305
  Receipt Date: 20090226
  Transmission Date: 20090719
  Serious: Yes (Other)
  Sender: FDA-Public Use
  Company Number: DSA_33276_2009

PATIENT
  Age: 48 Year
  Sex: Female

DRUGS (7)
  1. DILTIAZEM HYDROCHLORIDE [Suspect]
     Indication: IGA NEPHROPATHY
     Dosage: 300 MG QD, ORAL
     Route: 048
  2. IRBESARTAN [Suspect]
     Indication: DRUG USE FOR UNKNOWN INDICATION
     Dosage: DF
  3. MICONAZOLE [Concomitant]
  4. FOLIC ACID [Concomitant]
  5. FISH OIL [Concomitant]
  6. ALLOPURINOL [Concomitant]
  7. PANTETHINE [Concomitant]

REACTIONS (3)
  - ANGIOEDEMA [None]
  - HOT FLUSH [None]
  - RASH [None]
